FAERS Safety Report 12115055 (Version 1)
Quarter: 2016Q1

REPORT INFORMATION
  Report Type: Report from Study
  Country: IS (occurrence: IS)
  Receive Date: 20160225
  Receipt Date: 20160225
  Transmission Date: 20160526
  Serious: Yes (Hospitalization)
  Sender: FDA-Public Use
  Company Number: PHHY2016IS024266

PATIENT
  Sex: Male

DRUGS (1)
  1. DABRAFENIB [Suspect]
     Active Substance: DABRAFENIB
     Indication: MALIGNANT MELANOMA STAGE IV
     Dosage: UNK
     Route: 048
     Dates: start: 20160108

REACTIONS (3)
  - Systemic inflammatory response syndrome [Recovered/Resolved]
  - Cholecystitis [Recovered/Resolved]
  - Pyrexia [Recovered/Resolved]
